FAERS Safety Report 7624630-9 (Version None)
Quarter: 2011Q3

REPORT INFORMATION
  Report Type: 
  Country: None (occurrence: None)
  Receive Date: 20110720
  Receipt Date: 20110712
  Transmission Date: 20111222
  Serious: Yes (Death)
  Sender: FDA-Public Use
  Company Number: KR-BAXTER-2011BH023466

PATIENT

DRUGS (4)
  1. CISPLATIN [Suspect]
     Indication: BONE SARCOMA
     Route: 013
  2. IFOSFAMIDE [Suspect]
     Indication: BONE SARCOMA
     Route: 042
  3. DOXORUBICIN HCL [Suspect]
     Indication: BONE SARCOMA
     Route: 042
  4. MESNA [Concomitant]
     Indication: BONE SARCOMA
     Route: 065

REACTIONS (1)
  - SEPTIC SHOCK [None]
